FAERS Safety Report 6895240-6 (Version None)
Quarter: 2010Q3

REPORT INFORMATION
  Report Type: 
  Country: None (occurrence: None)
  Receive Date: 20100708
  Receipt Date: 20090521
  Transmission Date: 20110219
  Serious: Yes (Other)
  Sender: FDA-Public Use
  Company Number: 2009219561

PATIENT
  Age: 47 Year
  Sex: Female
  Weight: 89.8 kg

DRUGS (1)
  1. CHANTIX [Suspect]
     Indication: SMOKING CESSATION THERAPY
     Dosage: 1 MG, 2X/DAY, ORAL
     Route: 048
     Dates: start: 20090415, end: 20090101

REACTIONS (2)
  - NIGHTMARE [None]
  - SUICIDAL IDEATION [None]
